FAERS Safety Report 11789463 (Version 1)
Quarter: 2015Q4

REPORT INFORMATION
  Report Type: Spontaneous
  Country: PL (occurrence: PL)
  Receive Date: 20151201
  Receipt Date: 20151201
  Transmission Date: 20160305
  Serious: Yes (Hospitalization)
  Sender: FDA-Public Use
  Company Number: PL-TEVA-611127ACC

PATIENT
  Age: 33 Year
  Sex: Male
  Weight: 67 kg

DRUGS (3)
  1. FINLEPSIN [Suspect]
     Active Substance: CARBAMAZEPINE
     Indication: EPILEPSY
     Dosage: DOSE: 0.6; DOSE UNIT: NOT SPECIFIED
     Route: 048
     Dates: start: 20150506
  2. RIFAMAZID [Suspect]
     Active Substance: ISONIAZID\RIFAMPIN
     Dosage: 0.6+0.3 (DOSE UNIT NOT STATED)
     Route: 048
     Dates: start: 20150519
  3. NIDRAZID [Suspect]
     Active Substance: ISONIAZID
     Dosage: DOSE: 0.3; DOSE UNIT: NOT SPECIFIED
     Route: 048
     Dates: start: 20150509, end: 20150519

REACTIONS (1)
  - Neutropenia [Recovering/Resolving]

NARRATIVE: CASE EVENT DATE: 20150601
